FAERS Safety Report 8968650 (Version 2)
Quarter: 2013Q1

REPORT INFORMATION
  Report Type: Spontaneous
  Country: JP (occurrence: JP)
  Receive Date: 20121217
  Receipt Date: 20130128
  Transmission Date: 20140127
  Serious: Yes (Life-Threatening)
  Sender: FDA-Public Use
  Company Number: JP-ROCHE-1166696

PATIENT
  Age: 71 Year
  Sex: Female
  Weight: 44 kg

DRUGS (8)
  1. TARCEVA [Suspect]
     Indication: LUNG ADENOCARCINOMA
     Dosage: DOSAGE IS UNCERTAIN.
     Route: 048
     Dates: start: 20100730, end: 20110914
  2. TARCEVA [Suspect]
     Indication: LUNG ADENOCARCINOMA
     Route: 048
     Dates: start: 20121012, end: 20121018
  3. AVASTIN [Suspect]
     Indication: LUNG ADENOCARCINOMA
     Route: 041
     Dates: start: 20100603, end: 20100705
  4. AVASTIN [Suspect]
     Route: 041
     Dates: start: 20110915, end: 20120913
  5. PEMETREXED [Suspect]
     Indication: LUNG ADENOCARCINOMA
     Route: 041
     Dates: start: 20110915, end: 20120913
  6. CLARITIN REDITABS [Concomitant]
     Indication: RASH
     Route: 048
     Dates: start: 20120816
  7. CARBOPLATIN [Concomitant]
     Indication: LUNG ADENOCARCINOMA
     Route: 041
     Dates: start: 20100603, end: 20100705
  8. PACLITAXEL [Concomitant]
     Indication: LUNG ADENOCARCINOMA
     Route: 065
     Dates: start: 20100603, end: 20100705

REACTIONS (2)
  - Interstitial lung disease [Recovering/Resolving]
  - Rash [Unknown]
